FAERS Safety Report 8409940-X (Version None)
Quarter: 2012Q2

REPORT INFORMATION
  Report Type: 
  Country: None (occurrence: None)
  Receive Date: 20120605
  Receipt Date: 20120601
  Transmission Date: 20120825
  Serious: No
  Sender: FDA-Public Use
  Company Number: US-PFIZER INC-2012132699

PATIENT
  Sex: Male
  Weight: 104 kg

DRUGS (5)
  1. LORTAB [Concomitant]
     Dosage: UNK, AS NEEDED
  2. PROVIGIL [Concomitant]
  3. SUTENT [Suspect]
     Indication: RENAL CELL CARCINOMA
     Dosage: 37.5 MG, 1X/DAY
     Route: 048
     Dates: start: 20120401
  4. VITAMIN D [Concomitant]
  5. OXYCONTIN [Concomitant]
     Indication: PAIN

REACTIONS (1)
  - FATIGUE [None]
